FAERS Safety Report 6238722-2 (Version None)
Quarter: 2009Q2

REPORT INFORMATION
  Report Type: 
  Country: None (occurrence: None)
  Receive Date: 20090617
  Receipt Date: 20090611
  Transmission Date: 20091009
  Serious: Yes (Death, Hospitalization)
  Sender: FDA-Public Use
  Company Number: WAES 0906USA02174

PATIENT
  Age: 67 Year
  Sex: Male

DRUGS (3)
  1. DECADRON [Suspect]
     Indication: NON-SMALL CELL LUNG CANCER
     Dosage: 4 MG/PO
     Route: 048
     Dates: start: 20080916
  2. FOLIC ACID [Suspect]
     Indication: NON-SMALL CELL LUNG CANCER
     Dosage: 25 MG/DAILY, PO
     Route: 048
     Dates: start: 20080912
  3. ALIMTA [Suspect]
     Indication: NON-SMALL CELL LUNG CANCER
     Dosage: 500 MG/PRN, IV
     Route: 042
     Dates: start: 20080917

REACTIONS (12)
  - ANAEMIA [None]
  - BLOOD CHOLINESTERASE DECREASED [None]
  - BLOOD GLUCOSE INCREASED [None]
  - BLOOD POTASSIUM DECREASED [None]
  - BLOOD UREA INCREASED [None]
  - DYSPNOEA [None]
  - GAMMA-GLUTAMYLTRANSFERASE INCREASED [None]
  - HYPONATRAEMIA [None]
  - PROTEIN TOTAL DECREASED [None]
  - THROMBOCYTOPENIA [None]
  - WHITE BLOOD CELL COUNT DECREASED [None]
  - WHITE BLOOD CELL COUNT INCREASED [None]
